FAERS Safety Report 23148466 (Version 1)
Quarter: 2023Q4

REPORT INFORMATION
  Report Type: Spontaneous
  Country: DE (occurrence: US)
  Receive Date: 20231106
  Receipt Date: 20231106
  Transmission Date: 20240109
  Serious: No
  Sender: FDA-Public Use
  Company Number: DE-PFIZER INC-202300352158

PATIENT
  Age: 19 Year
  Sex: Female

DRUGS (1)
  1. PAXLOVID [Suspect]
     Active Substance: NIRMATRELVIR\RITONAVIR
     Indication: Chronic fatigue syndrome
     Dosage: UNK

REACTIONS (7)
  - Mental disorder [Unknown]
  - Somnolence [Unknown]
  - Confusional state [Unknown]
  - Aphasia [Unknown]
  - Illusion [Unknown]
  - Personality change [Unknown]
  - Off label use [Unknown]
